FAERS Safety Report 9221492 (Version 1)
Quarter: 2013Q2

REPORT INFORMATION
  Report Type: Spontaneous
  Country: US (occurrence: None)
  Receive Date: 20130408
  Receipt Date: 20130408
  Transmission Date: 20140414
  Serious: Yes (Other)
  Sender: FDA-Public Use
  Company Number: None

PATIENT
  Age: 31 Year
  Sex: Female
  Weight: 54 kg

DRUGS (1)
  1. MIRENA [Suspect]
     Indication: UTERINE PERFORATION
     Route: 015
     Dates: start: 20110301, end: 20130402

REACTIONS (2)
  - Uterine perforation [None]
  - Device dislocation [None]
